FAERS Safety Report 7969848-0 (Version None)
Quarter: 2011Q4

REPORT INFORMATION
  Report Type: 
  Country: None (occurrence: None)
  Receive Date: 20111121
  Receipt Date: 20110812
  Transmission Date: 20120403
  Serious: No
  Sender: FDA-Public Use
  Company Number: 1000022856

PATIENT
  Sex: Male

DRUGS (3)
  1. VIIBRYD [Suspect]
     Dosage: ORAL
     Route: 048
     Dates: end: 20110801
  2. RISPERDAL [Concomitant]
  3. LUNESTA (ESZOPICLONE) (ESZOPICLONE) [Concomitant]

REACTIONS (1)
  - VISUAL IMPAIRMENT [None]
